FAERS Safety Report 23022224 (Version 1)
Quarter: 2023Q4

REPORT INFORMATION
  Report Type: Spontaneous
  Country: CN (occurrence: None)
  Receive Date: 20231003
  Receipt Date: 20231003
  Transmission Date: 20240110
  Serious: Yes (Hospitalization, Other)
  Sender: FDA-Public Use
  Company Number: 2023A218370

PATIENT
  Age: 66 Year
  Sex: Male
  Weight: 75 kg

DRUGS (3)
  1. IMFINZI [Suspect]
     Active Substance: DURVALUMAB
     Indication: Small cell lung cancer extensive stage
     Dosage: 1000 MG/PERIOD, 500MG A BOX, USED TWO BOXES EACH TIME
     Dates: start: 20220913, end: 20220913
  2. ETOPOSIDE [Concomitant]
     Active Substance: ETOPOSIDE
     Indication: Small cell lung cancer extensive stage
  3. GLIMEPIRIDE [Concomitant]
     Active Substance: GLIMEPIRIDE

REACTIONS (14)
  - Malaise [Unknown]
  - Paralysis [Unknown]
  - Pneumonitis [Unknown]
  - Anal incontinence [Not Recovered/Not Resolved]
  - Urinary incontinence [Not Recovered/Not Resolved]
  - Loss of consciousness [Unknown]
  - Illness [Unknown]
  - Mental disorder [Unknown]
  - Speech disorder [Unknown]
  - Cognitive disorder [Unknown]
  - Tongue disorder [Unknown]
  - Confusional state [Unknown]
  - Pyrexia [Unknown]
  - Productive cough [Unknown]

NARRATIVE: CASE EVENT DATE: 20220101
